FAERS Safety Report 25900688 (Version 1)
Quarter: 2025Q4

REPORT INFORMATION
  Report Type: Report from Study
  Country: BR (occurrence: BR)
  Receive Date: 20251009
  Receipt Date: 20251009
  Transmission Date: 20260118
  Serious: Yes (Other)
  Sender: NOVARTIS
  Company Number: BR-002147023-NVSC2025BR156388

PATIENT
  Age: 65 Year
  Sex: Female

DRUGS (5)
  1. ZOMETA [Suspect]
     Active Substance: ZOLEDRONIC ACID
     Indication: Bone cancer
     Dosage: UNK, Q3MO
     Route: 042
     Dates: start: 2023
  2. ZOMETA [Suspect]
     Active Substance: ZOLEDRONIC ACID
     Dosage: LAST DOSE (18 JUL)
     Route: 042
  3. OMEGA 3 [Concomitant]
     Active Substance: CAPSAICIN
     Indication: Product used for unknown indication
     Dosage: UNK
     Route: 065
  4. KISQALI [Concomitant]
     Active Substance: RIBOCICLIB SUCCINATE
     Indication: Product used for unknown indication
     Dosage: UNK
     Route: 065
  5. ANASTROZOLE [Concomitant]
     Active Substance: ANASTROZOLE
     Indication: Product used for unknown indication
     Dosage: UNK
     Route: 065

REACTIONS (13)
  - Haemoglobin decreased [Recovering/Resolving]
  - White blood cell count decreased [Recovering/Resolving]
  - Anaemia [Recovering/Resolving]
  - Haematocrit decreased [Recovering/Resolving]
  - Red blood cell count decreased [Recovering/Resolving]
  - Platelet count decreased [Recovering/Resolving]
  - Mean cell volume increased [Not Recovered/Not Resolved]
  - Mean cell haemoglobin increased [Recovering/Resolving]
  - Lymphocyte count decreased [Recovered/Resolved]
  - Monocyte count decreased [Recovered/Resolved]
  - Red cell distribution width increased [Not Recovered/Not Resolved]
  - Band neutrophil count decreased [Recovering/Resolving]
  - Eosinophil count decreased [Recovering/Resolving]

NARRATIVE: CASE EVENT DATE: 20250926
